FAERS Safety Report 7984725-7 (Version None)
Quarter: 2011Q4

REPORT INFORMATION
  Report Type: 
  Country: None (occurrence: None)
  Receive Date: 20111216
  Receipt Date: 20111209
  Transmission Date: 20120403
  Serious: Yes (Other)
  Sender: FDA-Public Use
  Company Number: DE-UCBSA-047427

PATIENT
  Age: 6 Year

DRUGS (2)
  1. VIMPAT [Suspect]
  2. VIMPAT [Suspect]

REACTIONS (1)
  - CONVULSION [None]
